FAERS Safety Report 16911205 (Version 1)
Quarter: 2019Q4

REPORT INFORMATION
  Report Type: Spontaneous
  Country: US (occurrence: US)
  Receive Date: 20191012
  Receipt Date: 20191012
  Transmission Date: 20200122
  Serious: No
  Sender: FDA-Public Use
  Company Number: US-TEVA-2019-US-1119845

PATIENT
  Sex: Male

DRUGS (1)
  1. BUPRENORPHINE 2MG TABLETS TEVA [Suspect]
     Active Substance: BUPRENORPHINE HYDROCHLORIDE
     Indication: PAIN
     Route: 065
     Dates: start: 201908

REACTIONS (1)
  - Drug ineffective [Unknown]
